FAERS Safety Report 7766197-0 (Version None)
Quarter: 2011Q3

REPORT INFORMATION
  Report Type: 
  Country: None (occurrence: None)
  Receive Date: 20110921
  Receipt Date: 20110912
  Transmission Date: 20111222
  Serious: Yes (Other)
  Sender: FDA-Public Use
  Company Number: US-ASTRAZENECA-2011SE54823

PATIENT
  Age: 70 Year
  Sex: Female

DRUGS (1)
  1. NEXIUM [Suspect]
     Route: 048

REACTIONS (12)
  - CHRONIC OBSTRUCTIVE PULMONARY DISEASE [None]
  - PARANOIA [None]
  - HYPERTENSION [None]
  - SLEEP APNOEA SYNDROME [None]
  - DYSPNOEA [None]
  - EYELID EXFOLIATION [None]
  - DIABETES MELLITUS [None]
  - FALL [None]
  - NEUROPATHY PERIPHERAL [None]
  - SKIN CANCER [None]
  - MENORRHAGIA [None]
  - SOCIAL PHOBIA [None]
